FAERS Safety Report 7543768-8 (Version None)
Quarter: 2011Q2

REPORT INFORMATION
  Report Type: 
  Country: None (occurrence: None)
  Receive Date: 20110613
  Receipt Date: 20040823
  Transmission Date: 20111010
  Serious: Yes (Hospitalization, Other)
  Sender: FDA-Public Use
  Company Number: PHFR2004GB02466

PATIENT
  Sex: Female
  Weight: 105 kg

DRUGS (2)
  1. DEPAKOTE [Concomitant]
     Dosage: 500 MG/DAY
     Route: 048
     Dates: start: 20031101, end: 20040801
  2. CLOZAPINE [Suspect]
     Indication: SCHIZOPHRENIA
     Dosage: 450MG/DAY
     Route: 048
     Dates: start: 20040406

REACTIONS (2)
  - INTENTIONAL SELF-INJURY [None]
  - SUICIDE ATTEMPT [None]
